FAERS Safety Report 5563090-9 (Version None)
Quarter: 2007Q4

REPORT INFORMATION
  Report Type: 
  Country: None (occurrence: None)
  Receive Date: 20071217
  Receipt Date: 20071214
  Transmission Date: 20080405
  Serious: Yes (Other)
  Sender: FDA-Public Use
  Company Number: A0699002A

PATIENT
  Age: 60 Year
  Sex: Female

DRUGS (1)
  1. GOODYS EXTRA STRENGTH HEADACHE POWDER [Suspect]
     Route: 048

REACTIONS (2)
  - EYE SWELLING [None]
  - VISUAL DISTURBANCE [None]
